FAERS Safety Report 5609530-8 (Version None)
Quarter: 2008Q1

REPORT INFORMATION
  Report Type: 
  Country: None (occurrence: None)
  Receive Date: 20080131
  Receipt Date: 20080125
  Transmission Date: 20080703
  Serious: Yes (Death, Other)
  Sender: FDA-Public Use
  Company Number: US-BOEHRINGER INGELHEIM GMBH, GERMANY-2008-DE-00491GD

PATIENT
  Age: 64 Year
  Sex: Female

DRUGS (17)
  1. PREDNISONE TAB [Suspect]
     Indication: ASTHMA
     Dosage: 10 TO 60 MG WITH FREQUENT HIGH-DOSE PULSES
     Route: 051
  2. INFLIXIMAB [Suspect]
     Indication: RHEUMATOID ARTHRITIS
     Dosage: 600 MG EVERY 8 WEEKS
  3. INFLIXIMAB [Suspect]
     Dosage: 300 MG EVERY 8 WEEKS
  4. METHOTREXATE [Suspect]
     Indication: IMMUNOSUPPRESSANT DRUG THERAPY
     Dosage: 15 MG WEEKLY
     Route: 048
  5. FUROSEMIDE [Concomitant]
  6. LOSARTAN POTASSIUM [Concomitant]
  7. METFORMIN HCL [Concomitant]
  8. PIOGLITAZONE [Concomitant]
  9. INSULIN [Concomitant]
     Indication: TYPE 1 DIABETES MELLITUS
  10. ATORVASTATIN [Concomitant]
  11. ALENDRONATE SODIUM [Concomitant]
  12. ALBUTEROL [Concomitant]
  13. METOCLOPRAMIDE [Concomitant]
  14. FLUTICASONE PROPIONATE [Concomitant]
  15. SALMETEROL [Concomitant]
  16. LORATADINE [Concomitant]
  17. GABAPENTIN [Concomitant]

REACTIONS (5)
  - ASTHMA [None]
  - BRONCHIECTASIS [None]
  - PNEUMONIA [None]
  - STAPHYLOCOCCAL SEPSIS [None]
  - TRICHOPHYTOSIS [None]
